FAERS Safety Report 7041122-9 (Version None)
Quarter: 2010Q4

REPORT INFORMATION
  Report Type: 
  Country: None (occurrence: None)
  Receive Date: 20101013
  Receipt Date: 20101011
  Transmission Date: 20110411
  Serious: Yes (Other)
  Sender: FDA-Public Use
  Company Number: FR-SANOFI-AVENTIS-2010SA061597

PATIENT
  Age: 41 Year
  Sex: Female

DRUGS (1)
  1. RIFAMATE [Suspect]
     Indication: PRODUCT USED FOR UNKNOWN INDICATION
     Dosage: DOSE:2 UNIT(S)
     Route: 048
     Dates: start: 20090610, end: 20090908

REACTIONS (3)
  - HEADACHE [None]
  - HYPERTENSION [None]
  - VERTIGO [None]
